FAERS Safety Report 5522628-8 (Version None)
Quarter: 2007Q4

REPORT INFORMATION
  Report Type: 
  Country: None (occurrence: None)
  Receive Date: 20071120
  Receipt Date: 20071112
  Transmission Date: 20080405
  Serious: Yes (Other)
  Sender: FDA-Public Use
  Company Number: US-PFIZER INC-2007095395

PATIENT
  Sex: Female
  Weight: 68.181 kg

DRUGS (3)
  1. CADUET [Suspect]
     Indication: HYPERTENSION
     Dosage: TEXT:5/10MG
  2. CADUET [Interacting]
     Indication: BLOOD CHOLESTEROL INCREASED
  3. CHANTIX [Interacting]
     Indication: SMOKING CESSATION THERAPY
     Dates: start: 20071101, end: 20071111

REACTIONS (5)
  - CEREBROVASCULAR ACCIDENT [None]
  - DRUG INTERACTION [None]
  - FEELING COLD [None]
  - FEELING HOT [None]
  - HOT FLUSH [None]
